FAERS Safety Report 21437923 (Version 1)
Quarter: 2022Q4

REPORT INFORMATION
  Report Type: Report from Study
  Country: US (occurrence: US)
  Receive Date: 20221011
  Receipt Date: 20221011
  Transmission Date: 20230112
  Serious: Yes (Other)
  Sender: FDA-Public Use
  Company Number: US-ABBVIE-4149136

PATIENT
  Sex: Female

DRUGS (3)
  1. HUMIRA [Suspect]
     Active Substance: ADALIMUMAB
     Indication: Product used for unknown indication
     Route: 058
     Dates: end: 202201
  2. Pfizer/BioNTech Covid-19 Vacicne [Concomitant]
     Indication: COVID-19 immunisation
     Dosage: FIRST DOSE/ ONCE
     Route: 030
     Dates: start: 20210401, end: 20210401
  3. Pfizer/BioNTech Covid-19 Vacicne [Concomitant]
     Indication: COVID-19 immunisation
     Dosage: SECOND DOSE/ONCE
     Route: 030
     Dates: start: 20210701, end: 20210701

REACTIONS (2)
  - Knee operation [Recovering/Resolving]
  - Procedural pain [Not Recovered/Not Resolved]
